FAERS Safety Report 26085572 (Version 1)
Quarter: 2025Q4

REPORT INFORMATION
  Report Type: Spontaneous
  Country: US (occurrence: US)
  Receive Date: 20251125
  Receipt Date: 20251125
  Transmission Date: 20260117
  Serious: No
  Sender: MEITHEAL PHARMACEUTICALS
  Company Number: US-MEITHEAL-2025MPSPO00382

PATIENT

DRUGS (2)
  1. BIVALIRUDIN [Suspect]
     Active Substance: BIVALIRUDIN
     Indication: Cardiac operation
     Route: 040
     Dates: start: 202510
  2. BIVALIRUDIN [Suspect]
     Active Substance: BIVALIRUDIN

REACTIONS (1)
  - Drug effect less than expected [Unknown]
